FAERS Safety Report 4437519-3 (Version None)
Quarter: 2004Q3

REPORT INFORMATION
  Report Type: 
  Country: None (occurrence: None)
  Receive Date: 20040831
  Receipt Date: 20040823
  Transmission Date: 20050211
  Serious: Yes (Hospitalization)
  Sender: FDA-Public Use
  Company Number: US-JNJFOC-20040402950

PATIENT
  Sex: Female
  Weight: 40.14 kg

DRUGS (8)
  1. REMICADE [Suspect]
     Dosage: AS NEEDED Q 6 WEEKS
     Route: 042
  2. REMICADE [Suspect]
     Indication: CROHN'S DISEASE
     Route: 042
  3. PREVACID [Concomitant]
     Indication: CROHN'S DISEASE
     Route: 049
  4. CENTRUM [Concomitant]
  5. CENTRUM [Concomitant]
     Indication: CROHN'S DISEASE
     Dosage: 1 TABLET DAILY
  6. PENTASA [Concomitant]
     Indication: CROHN'S DISEASE
  7. IMURAN [Concomitant]
     Indication: CROHN'S DISEASE
     Dosage: Q AM
  8. PREDNISONE [Concomitant]
     Indication: CROHN'S DISEASE
     Route: 049

REACTIONS (3)
  - CHILLS [None]
  - PALPITATIONS [None]
  - PYREXIA [None]
